FAERS Safety Report 6831744-X (Version None)
Quarter: 2010Q3

REPORT INFORMATION
  Report Type: 
  Country: None (occurrence: None)
  Receive Date: 20100712
  Receipt Date: 20100629
  Transmission Date: 20110219
  Serious: Yes (Other)
  Sender: FDA-Public Use
  Company Number: FR-ELI_LILLY_AND_COMPANY-FR201005001531

PATIENT
  Age: 61 Year
  Sex: Female

DRUGS (8)
  1. FORTEO [Suspect]
     Indication: OSTEOPOROSIS
     Dosage: 20 UG, DAILY (1/D)
     Route: 058
     Dates: start: 20090901
  2. LEVOTHYROXINE SODIUM [Concomitant]
  3. ALDACTONE [Concomitant]
  4. PANOS [Concomitant]
  5. IXEL [Concomitant]
  6. OXYCONTIN [Concomitant]
  7. PANTOPRAZOLE SODIUM [Concomitant]
  8. GINKOR                             /00838501/ [Concomitant]

REACTIONS (1)
  - RENAL MASS [None]
